FAERS Safety Report 9226362 (Version 5)
Quarter: 2015Q2

REPORT INFORMATION
  Report Type: Spontaneous
  Country: US (occurrence: US)
  Receive Date: 20130411
  Receipt Date: 20150406
  Transmission Date: 20150821
  Serious: Yes (Death, Life-Threatening, Hospitalization, Disabling, Other)
  Sender: FDA-Public Use
  Company Number: US-MERCK-1304USA004657

PATIENT
  Sex: Female
  Weight: 79.37 kg

DRUGS (1)
  1. JANUVIA [Suspect]
     Active Substance: SITAGLIPTIN PHOSPHATE
     Indication: TYPE 2 DIABETES MELLITUS
     Dosage: 100 MG, QD
     Route: 048
     Dates: start: 20071016, end: 20120816

REACTIONS (24)
  - Pancreatic carcinoma stage IV [Fatal]
  - Cardiac stress test abnormal [Unknown]
  - Diverticulum [Unknown]
  - Splenic calcification [Unknown]
  - Scoliosis [Unknown]
  - Metastatic neoplasm [Unknown]
  - Explorative laparotomy [Unknown]
  - Splenectomy [Unknown]
  - Hepatic lesion [Unknown]
  - Splenic artery aneurysm [Unknown]
  - Scoliosis [Unknown]
  - Mesenteric neoplasm [Unknown]
  - Cholelithiasis [Unknown]
  - Pancreatectomy [Unknown]
  - Metastases to peritoneum [Recovered/Resolved]
  - Pancreatitis [Unknown]
  - Lung infiltration [Unknown]
  - Hypersensitivity [Unknown]
  - Spinal osteoarthritis [Unknown]
  - Oesophagitis [Unknown]
  - Pulmonary fibrosis [Unknown]
  - Intervertebral disc degeneration [Unknown]
  - Ascites [Unknown]
  - Atelectasis [Unknown]

NARRATIVE: CASE EVENT DATE: 20120118
